FAERS Safety Report 9969291 (Version 1)
Quarter: 2014Q1

REPORT INFORMATION
  Report Type: Spontaneous
  Country: US (occurrence: US)
  Receive Date: 20140306
  Receipt Date: 20140306
  Transmission Date: 20141002
  Serious: No
  Sender: FDA-Public Use
  Company Number: US-BIOGENIDEC-2014BI018297

PATIENT
  Age: 65 Year
  Sex: Female

DRUGS (9)
  1. TECFIDERA [Suspect]
     Indication: MULTIPLE SCLEROSIS
     Route: 048
  2. ?AMANTADINE [Concomitant]
  3. AMLODIPINE BESYLATE [Concomitant]
  4. BACLOFEN [Concomitant]
  5. DANTRIUM [Concomitant]
  6. DIOVAN [Concomitant]
  7. FLUOXETINE [Concomitant]
  8. PRIMIDONE [Concomitant]
  9. SYNTHROID [Concomitant]

REACTIONS (1)
  - Insomnia [Unknown]
